FAERS Safety Report 25537448 (Version 1)
Quarter: 2025Q3

REPORT INFORMATION
  Report Type: Spontaneous
  Country: CA (occurrence: CA)
  Receive Date: 20250710
  Receipt Date: 20250710
  Transmission Date: 20251020
  Serious: Yes (Hospitalization)
  Sender: GLAXOSMITHKLINE
  Company Number: CA-GSK-CA2025AMR084742

PATIENT
  Age: 29 Year
  Sex: Female

DRUGS (10)
  1. LAMICTAL [Suspect]
     Active Substance: LAMOTRIGINE
     Indication: Product used for unknown indication
     Dosage: 100 MG, BID
  2. LAMICTAL [Suspect]
     Active Substance: LAMOTRIGINE
     Dosage: 175 MG, BID
  3. XCOPRI [Suspect]
     Active Substance: CENOBAMATE
     Indication: Partial seizures
     Dosage: 100 MG, QD
  4. XCOPRI [Suspect]
     Active Substance: CENOBAMATE
     Indication: Epilepsy
     Dosage: 50 MG, QD
  5. XCOPRI [Suspect]
     Active Substance: CENOBAMATE
     Dosage: 25 MG, QD
  6. XCOPRI [Suspect]
     Active Substance: CENOBAMATE
     Dosage: 12.5 MG, QD
  7. XCOPRI [Suspect]
     Active Substance: CENOBAMATE
     Dosage: 150 MG, QD
  8. BRIVARACETAM [Concomitant]
     Active Substance: BRIVARACETAM
     Indication: Product used for unknown indication
  9. EPIVAL [Concomitant]
     Active Substance: DIVALPROEX SODIUM
     Indication: Product used for unknown indication
  10. METHSUXIMIDE [Concomitant]
     Active Substance: METHSUXIMIDE
     Indication: Product used for unknown indication

REACTIONS (8)
  - Dizziness [Unknown]
  - Hospitalisation [Unknown]
  - Hypermagnesaemia [Unknown]
  - Hypersomnia [Unknown]
  - Hypoaesthesia [Unknown]
  - Nausea [Unknown]
  - Somnolence [Unknown]
  - Wrong technique in product usage process [Unknown]
